FAERS Safety Report 8107029-0 (Version None)
Quarter: 2012Q1

REPORT INFORMATION
  Report Type: 
  Country: None (occurrence: None)
  Receive Date: 20120126
  Receipt Date: 20120126
  Transmission Date: 20120608
  Serious: Yes (Hospitalization)
  Sender: FDA-Public Use
  Company Number: None

PATIENT
  Age: 63 Year
  Sex: Male

DRUGS (6)
  1. REVLIMID [Suspect]
     Indication: MULTIPLE MYELOMA
     Dosage: 15MG QDX14D/21D ORALLY
     Route: 048
  2. DECADRON [Concomitant]
  3. VELCADE [Concomitant]
  4. MAXZIDE [Concomitant]
  5. AMILODIPINE [Concomitant]
  6. NOVOLIN R [Concomitant]

REACTIONS (1)
  - PNEUMONIA [None]
